FAERS Safety Report 17411719 (Version 1)
Quarter: 2020Q1

REPORT INFORMATION
  Report Type: Spontaneous
  Country: CA (occurrence: CA)
  Receive Date: 20200213
  Receipt Date: 20200213
  Transmission Date: 20200409
  Serious: Yes (Other)
  Sender: FDA-Public Use
  Company Number: CA-B.I. PHARMACEUTICALS,INC./RIDGEFIELD-2020-BI-007096

PATIENT
  Age: 67 Year
  Sex: Male
  Weight: 118 kg

DRUGS (8)
  1. SALBUTAMOL [Suspect]
     Active Substance: ALBUTEROL
     Indication: PRODUCT USED FOR UNKNOWN INDICATION
     Route: 065
  2. LOSEC [Concomitant]
     Active Substance: OMEPRAZOLE
     Indication: PRODUCT USED FOR UNKNOWN INDICATION
     Route: 065
  3. SPIRIVA [Suspect]
     Active Substance: TIOTROPIUM BROMIDE MONOHYDRATE
     Indication: PRODUCT USED FOR UNKNOWN INDICATION
     Route: 065
  4. FISH OIL [Concomitant]
     Active Substance: FISH OIL
     Indication: PRODUCT USED FOR UNKNOWN INDICATION
     Route: 065
  5. VITAMIN B12 [Concomitant]
     Active Substance: CYANOCOBALAMIN
     Indication: PRODUCT USED FOR UNKNOWN INDICATION
     Route: 065
  6. VITAMIN D3 [Concomitant]
     Active Substance: CHOLECALCIFEROL
     Indication: PRODUCT USED FOR UNKNOWN INDICATION
     Route: 065
  7. BREO ELLIPTA [Suspect]
     Active Substance: FLUTICASONE FUROATE\VILANTEROL TRIFENATATE
     Indication: PRODUCT USED FOR UNKNOWN INDICATION
     Dosage: FORMULATION- INHALATION
     Route: 065
  8. VITAMIN B12 [Concomitant]
     Active Substance: CYANOCOBALAMIN
     Dosage: DOSAGE FORM- SOLUTION
     Route: 065

REACTIONS (21)
  - Antinuclear antibody positive [Unknown]
  - Asthma [Unknown]
  - Dyspnoea exertional [Unknown]
  - Pectus excavatum [Unknown]
  - Chest pain [Unknown]
  - Infection [Unknown]
  - Rhinitis [Unknown]
  - Pleural disorder [Unknown]
  - Pulmonary mass [Unknown]
  - Pneumonia [Unknown]
  - Deformity thorax [Unknown]
  - Dyspnoea [Unknown]
  - Restrictive pulmonary disease [Unknown]
  - Wheezing [Unknown]
  - Oxygen saturation decreased [Unknown]
  - Productive cough [Unknown]
  - Blood immunoglobulin E abnormal [Unknown]
  - Bronchial hyperreactivity [Unknown]
  - Chest discomfort [Unknown]
  - Eosinophilia [Unknown]
  - Prolonged expiration [Unknown]
